FAERS Safety Report 6512350-3 (Version None)
Quarter: 2009Q4

REPORT INFORMATION
  Report Type: 
  Country: None (occurrence: None)
  Receive Date: 20091222
  Receipt Date: 20090811
  Transmission Date: 20100525
  Serious: No
  Sender: FDA-Public Use
  Company Number: US-ASTRAZENECA-2009UW18744

PATIENT
  Age: 89 Year
  Sex: Female
  Weight: 98.4 kg

DRUGS (8)
  1. CRESTOR [Suspect]
     Route: 048
     Dates: start: 20090623
  2. ACTONEL [Concomitant]
  3. LANTUS [Concomitant]
  4. TEMAZEPAM [Concomitant]
  5. DICOLOFENAZ [Concomitant]
  6. ASCORBIC ACID [Concomitant]
  7. VITAMIN E [Concomitant]
  8. VESICARE [Concomitant]

REACTIONS (4)
  - MUSCULAR WEAKNESS [None]
  - NOCTURIA [None]
  - PAIN IN EXTREMITY [None]
  - VISUAL ACUITY REDUCED [None]
